FAERS Safety Report 7535952-4 (Version None)
Quarter: 2011Q2

REPORT INFORMATION
  Report Type: 
  Country: None (occurrence: None)
  Receive Date: 20110602
  Receipt Date: 20110527
  Transmission Date: 20111010
  Serious: Yes (Other)
  Sender: FDA-Public Use
  Company Number: 1000020910

PATIENT
  Age: 64 Year
  Sex: Male

DRUGS (4)
  1. LOPRESSOR [Suspect]
     Indication: HYPERTENSION
     Dosage: 100 MG (50 MG,2 IN 1 D),ORAL
     Route: 048
     Dates: end: 20110513
  2. LISINOPRIL [Concomitant]
  3. HYDROCHLOROTHIAZIDE [Concomitant]
  4. BYSTOLIC [Suspect]
     Indication: HYPERTENSION
     Dosage: 5 MG (5 MG,1 IN 1 D),ORAL
     Route: 048
     Dates: start: 20110425, end: 20110513

REACTIONS (2)
  - OVERDOSE [None]
  - HYPOTENSION [None]
